FAERS Safety Report 9942455 (Version 1)
Quarter: 2014Q1

REPORT INFORMATION
  Report Type: Report from Study
  Country: US (occurrence: US)
  Receive Date: 20140303
  Receipt Date: 20140303
  Transmission Date: 20141002
  Serious: No
  Sender: FDA-Public Use
  Company Number: US-ABBVIE-13P-163-1044680-00

PATIENT
  Sex: Female

DRUGS (15)
  1. HUMIRA [Suspect]
     Indication: RHEUMATOID ARTHRITIS
     Route: 058
     Dates: start: 2011
  2. PREDNISONE [Concomitant]
     Indication: RHEUMATOID ARTHRITIS
  3. CELEBREX [Concomitant]
     Indication: RHEUMATOID ARTHRITIS
  4. NITROGLYCERIN [Concomitant]
     Indication: OESOPHAGEAL STENOSIS
  5. METHOTREXATE [Concomitant]
     Indication: RHEUMATOID ARTHRITIS
  6. VALPROIC ACID [Concomitant]
     Indication: CONVULSION
  7. PERCOCET [Concomitant]
     Indication: PAIN
  8. LEXAPRO [Concomitant]
     Indication: DEPRESSION
  9. FOLIC ACID [Concomitant]
     Indication: ILL-DEFINED DISORDER
  10. ALPRAZOLAM [Concomitant]
     Indication: ANXIETY
  11. LASIX [Concomitant]
     Indication: OEDEMA PERIPHERAL
  12. CALCIUM [Concomitant]
     Indication: OSTEOPOROSIS
  13. FISH OIL [Concomitant]
     Indication: PROPHYLAXIS
  14. ECHINACEA [Concomitant]
     Indication: ROUTINE HEALTH MAINTENANCE
  15. TRAMADOL [Concomitant]
     Indication: ARTHRALGIA

REACTIONS (1)
  - Road traffic accident [Recovered/Resolved]
